FAERS Safety Report 9703941 (Version 1)
Quarter: 2013Q4

REPORT INFORMATION
  Report Type: Spontaneous
  Country: US (occurrence: None)
  Receive Date: 20131121
  Receipt Date: 20131121
  Transmission Date: 20140711
  Serious: Yes (Hospitalization)
  Sender: FDA-Public Use
  Company Number: None

PATIENT
  Age: 66 Year
  Sex: Female
  Weight: 148 kg

DRUGS (10)
  1. NITROFURANTOIN [Suspect]
     Indication: URINARY TRACT INFECTION
     Route: 048
     Dates: start: 20110912, end: 20110912
  2. VITAMIN C [Concomitant]
  3. DOCUSATE [Concomitant]
  4. DULOXETINE [Concomitant]
  5. GABAPENTIN [Concomitant]
  6. HEPARIN [Concomitant]
  7. HYDROMORPHONE [Concomitant]
  8. INSULIN GLARGINE [Concomitant]
  9. MULTIVITAMIN [Concomitant]
  10. ZINC SULFATE [Concomitant]

REACTIONS (2)
  - Dyspnoea [None]
  - Hypoxia [None]
